FAERS Safety Report 19849394 (Version 5)
Quarter: 2022Q3

REPORT INFORMATION
  Report Type: Spontaneous
  Country: US (occurrence: US)
  Receive Date: 20210917
  Receipt Date: 20220722
  Transmission Date: 20221027
  Serious: Yes (Hospitalization)
  Sender: FDA-Public Use
  Company Number: US-CATALYST PHARMACEUTICALS, INC-2021CAT00400

PATIENT
  Age: 75 Year
  Sex: Female

DRUGS (5)
  1. FIRDAPSE [Suspect]
     Active Substance: AMIFAMPRIDINE PHOSPHATE
     Indication: Myasthenic syndrome
     Dosage: TWO TABLETS (20 MG), 4X/DAY
     Route: 048
     Dates: start: 202002
  2. FIRDAPSE [Suspect]
     Active Substance: AMIFAMPRIDINE PHOSPHATE
     Dosage: TWO TABLETS (20 MG), 4X/DAY
     Route: 048
  3. FIRDAPSE [Suspect]
     Active Substance: AMIFAMPRIDINE PHOSPHATE
     Dosage: 20 MG, 4X/DAY
     Route: 048
  4. FIRDAPSE [Suspect]
     Active Substance: AMIFAMPRIDINE PHOSPHATE
     Dosage: 20 MG, 4X/DAY
     Route: 048
  5. FIRDAPSE [Suspect]
     Active Substance: AMIFAMPRIDINE PHOSPHATE
     Dosage: 20 MG, 4X/DAY
     Route: 048

REACTIONS (11)
  - Complication associated with device [Recovered/Resolved]
  - Abdominal wall infection [Recovered/Resolved]
  - Dehydration [Not Recovered/Not Resolved]
  - Vomiting [Not Recovered/Not Resolved]
  - Confusional state [Not Recovered/Not Resolved]
  - Device dislocation [Not Recovered/Not Resolved]
  - Gastrointestinal tube insertion [Recovered/Resolved]
  - Pneumonia [Not Recovered/Not Resolved]
  - Asthenia [Not Recovered/Not Resolved]
  - Gastrostomy tube removal [Recovered/Resolved]
  - Fall [Recovered/Resolved]

NARRATIVE: CASE EVENT DATE: 20210901
